APPROVED DRUG PRODUCT: EPINEPHRINE
Active Ingredient: EPINEPHRINE
Strength: EQ 30MG BASE/30ML (EQ 1MG BASE/ML)
Dosage Form/Route: SOLUTION;INTRAMUSCULAR, INTRAVENOUS, SUBCUTANEOUS
Application: A217485 | Product #001 | TE Code: AP
Applicant: AMNEAL EU LTD
Approved: Oct 14, 2025 | RLD: No | RS: No | Type: RX